FAERS Safety Report 13903896 (Version 1)
Quarter: 2017Q3

REPORT INFORMATION
  Report Type: Spontaneous
  Country: US (occurrence: US)
  Receive Date: 20170824
  Receipt Date: 20170824
  Transmission Date: 20171127
  Serious: No
  Sender: FDA-Public Use
  Company Number: US-GILEAD-2017-0289565

PATIENT
  Age: 54 Year
  Sex: Male

DRUGS (3)
  1. RIBAVIRIN. [Concomitant]
     Active Substance: RIBAVIRIN
     Indication: CHRONIC HEPATITIS C
     Dosage: UNK
     Dates: start: 20140805
  2. SOVALDI [Suspect]
     Active Substance: SOFOSBUVIR
     Indication: CHRONIC HEPATITIS C
     Dosage: 400 MG, QD
     Route: 065
     Dates: start: 20140805
  3. PEGINTERFERON ALFA-2A. [Concomitant]
     Active Substance: PEGINTERFERON ALFA-2A
     Indication: CHRONIC HEPATITIS C
     Dosage: 180 UNK, UNK
     Dates: start: 20140805

REACTIONS (2)
  - Abdominal pain upper [Recovering/Resolving]
  - Chest pain [Recovering/Resolving]
